FAERS Safety Report 7028551-4 (Version None)
Quarter: 2010Q3

REPORT INFORMATION
  Report Type: 
  Country: None (occurrence: None)
  Receive Date: 20100920
  Receipt Date: 20100625
  Transmission Date: 20110219
  Serious: Yes (Hospitalization, Other)
  Sender: FDA-Public Use
  Company Number: 2010034368

PATIENT
  Age: 14 Year
  Sex: Male

DRUGS (2)
  1. DILANTIN-125 [Suspect]
     Indication: CONVULSION
     Dates: start: 19961101, end: 19961205
  2. DEPAKOTE [Concomitant]

REACTIONS (1)
  - STEVENS-JOHNSON SYNDROME [None]
